FAERS Safety Report 8005513-1 (Version None)
Quarter: 2011Q4

REPORT INFORMATION
  Report Type: 
  Country: None (occurrence: None)
  Receive Date: 20111223
  Receipt Date: 20111214
  Transmission Date: 20120403
  Serious: Yes (Other)
  Sender: FDA-Public Use
  Company Number: CA-JNJFOC-20111208219

PATIENT
  Sex: Male
  Weight: 116.5 kg

DRUGS (7)
  1. REMICADE [Suspect]
     Route: 042
     Dates: start: 20111020
  2. REMICADE [Suspect]
     Indication: ANKYLOSING SPONDYLITIS
     Route: 042
     Dates: start: 20060109
  3. RAMIPRIL [Concomitant]
  4. KEPPRA [Concomitant]
  5. DIVALPROEX SODIUM [Concomitant]
  6. FOLIC ACID [Concomitant]
  7. THYROID TAB [Concomitant]

REACTIONS (3)
  - FALL [None]
  - LIMB INJURY [None]
  - SOFT TISSUE INJURY [None]
